FAERS Safety Report 7934803-3 (Version None)
Quarter: 2011Q4

REPORT INFORMATION
  Report Type: 
  Country: None (occurrence: None)
  Receive Date: 20111122
  Receipt Date: 20111118
  Transmission Date: 20120403
  Serious: Yes (Other)
  Sender: FDA-Public Use
  Company Number: US-BIOMARINP-002145

PATIENT
  Sex: Female
  Weight: 60.6 kg

DRUGS (3)
  1. KUVAN [Suspect]
     Indication: DYSTONIA
     Route: 048
     Dates: start: 20111117
  2. KUVAN [Suspect]
     Route: 048
     Dates: start: 20110913
  3. KUVAN [Suspect]
     Route: 048
     Dates: start: 20111111

REACTIONS (1)
  - SUICIDAL IDEATION [None]
